FAERS Safety Report 9536491 (Version 1)
Quarter: 2013Q2

REPORT INFORMATION
  Report Type: Spontaneous
  Country: US (occurrence: None)
  Receive Date: 20130515
  Receipt Date: 20130515
  Transmission Date: 20140414
  Serious: Yes (Other)
  Sender: FDA-Public Use
  Company Number: FK201202902

PATIENT
  Age: 51 Year
  Sex: Female

DRUGS (1)
  1. VANCOMYCIN HYDROCHLORIDE [Suspect]
     Indication: PNEUMONIA
     Dosage: UNKNOWN, INTRAVENOUS (NOT OTHERWISE SPECIFIED)
     Dates: start: 20120924, end: 20120927

REACTIONS (2)
  - Blood creatinine increased [None]
  - Renal failure acute [None]
